FAERS Safety Report 8936434 (Version 1)
Quarter: 2012Q4

REPORT INFORMATION
  Report Type: 
  Country: US (occurrence: US)
  Receive Date: 20121130
  Receipt Date: 20121130
  Transmission Date: 20130627
  Serious: Yes (Death)
  Sender: FDA-Public Use
  Company Number: US-TEVA-372789USA

PATIENT
  Age: 32 Year
  Sex: Female

DRUGS (3)
  1. QUETIAPINE FUMARATE [Suspect]
     Indication: COMPLETED SUICIDE
     Route: 065
  2. METHADONE [Suspect]
     Indication: COMPLETED SUICIDE
     Route: 065
  3. KEPPRA [Concomitant]
     Route: 065

REACTIONS (2)
  - Toxicity to various agents [Fatal]
  - Completed suicide [Fatal]
